FAERS Safety Report 9341469 (Version 1)
Quarter: 2013Q2

REPORT INFORMATION
  Report Type: Spontaneous
  Country: US (occurrence: None)
  Receive Date: 20130610
  Receipt Date: 20130610
  Transmission Date: 20140414
  Serious: No
  Sender: FDA-Public Use
  Company Number: None

PATIENT
  Age: 92 Year
  Sex: Female
  Weight: 61.69 kg

DRUGS (1)
  1. PREDNISONE, 10 MG [Suspect]
     Indication: POLYMYALGIA RHEUMATICA
     Dosage: ONCE A DAY

REACTIONS (1)
  - Dizziness [None]
